FAERS Safety Report 9425063 (Version 2)
Quarter: 2013Q3

REPORT INFORMATION
  Report Type: Spontaneous
  Country: IT (occurrence: IT)
  Receive Date: 20130729
  Receipt Date: 20130903
  Transmission Date: 20140515
  Serious: Yes (Death)
  Sender: FDA-Public Use
  Company Number: IT-SANOFI-AVENTIS-2013SA073382

PATIENT
  Age: 85 Year
  Sex: Male

DRUGS (12)
  1. CLEXANE T [Suspect]
     Indication: ATRIAL FIBRILLATION
     Route: 058
     Dates: start: 20130517, end: 20130517
  2. CLEXANE T [Suspect]
     Indication: ATRIAL FIBRILLATION
     Route: 058
     Dates: start: 20130518, end: 20130527
  3. SELEPARINA [Suspect]
     Indication: ATRIAL FIBRILLATION
     Route: 058
     Dates: start: 20130515, end: 20130516
  4. RIFAMPICIN [Concomitant]
     Indication: INTERVERTEBRAL DISCITIS
     Route: 048
  5. PENSTAPHO [Concomitant]
     Indication: INTERVERTEBRAL DISCITIS
     Route: 042
     Dates: start: 20130518, end: 20130527
  6. ORAMORPH [Concomitant]
     Route: 048
  7. ANTRA [Concomitant]
  8. COMBISARTAN [Concomitant]
     Indication: HYPERTENSION
     Route: 048
  9. LASIX [Concomitant]
     Route: 048
  10. ATORVASTATIN [Concomitant]
     Route: 048
  11. LANTUS [Concomitant]
     Indication: TYPE 2 DIABETES MELLITUS
     Route: 058
  12. HUMALOG [Concomitant]
     Indication: TYPE 2 DIABETES MELLITUS
     Route: 058

REACTIONS (2)
  - Anaemia [Fatal]
  - Spontaneous haematoma [Fatal]
